FAERS Safety Report 14806665 (Version 2)
Quarter: 2018Q2

REPORT INFORMATION
  Report Type: Spontaneous
  Country: US (occurrence: US)
  Receive Date: 20180425
  Receipt Date: 20180430
  Transmission Date: 20180711
  Serious: Yes (Other)
  Sender: FDA-Public Use
  Company Number: PHHY2018US069081

PATIENT
  Age: 61 Year
  Sex: Male

DRUGS (1)
  1. DICLOFENAC [Suspect]
     Active Substance: DICLOFENAC
     Indication: PRODUCT USED FOR UNKNOWN INDICATION
     Dosage: UNK
     Route: 065

REACTIONS (9)
  - Nausea [Unknown]
  - Renal tubular necrosis [Recovering/Resolving]
  - Oedema peripheral [Unknown]
  - Acute kidney injury [Recovered/Resolved]
  - Peripheral swelling [Unknown]
  - Decreased appetite [Unknown]
  - Glomerulonephritis minimal lesion [Recovering/Resolving]
  - Periorbital oedema [Unknown]
  - Asthenia [Unknown]
